FAERS Safety Report 8335152-4 (Version None)
Quarter: 2012Q2

REPORT INFORMATION
  Report Type: 
  Country: None (occurrence: None)
  Receive Date: 20120503
  Receipt Date: 20120426
  Transmission Date: 20120825
  Serious: Yes (Hospitalization)
  Sender: FDA-Public Use
  Company Number: GB-B.I. PHARMACEUTICALS,INC./RIDGEFIELD-2012-UK-00588UK

PATIENT
  Age: 70 Year
  Sex: Male

DRUGS (4)
  1. ZOLADEX [Concomitant]
     Indication: PROSTATE CANCER
  2. ABACAVIR SULFATE/LAMIVUDINE [Concomitant]
  3. DICLOFENAC [Concomitant]
  4. NEVIRAPINE [Suspect]
     Indication: HIV INFECTION
     Dosage: 400 MG
     Dates: start: 20120301

REACTIONS (3)
  - CONFUSIONAL STATE [None]
  - LIVER FUNCTION TEST ABNORMAL [None]
  - ASPARTATE AMINOTRANSFERASE INCREASED [None]
